FAERS Safety Report 17187486 (Version 2)
Quarter: 2020Q1

REPORT INFORMATION
  Report Type: Spontaneous
  Country: FR (occurrence: FR)
  Receive Date: 20191220
  Receipt Date: 20200106
  Transmission Date: 20200409
  Serious: Yes (Hospitalization, Other)
  Sender: FDA-Public Use
  Company Number: FR-AUROBINDO-AUR-APL-2019-105891

PATIENT
  Age: 80 Year
  Sex: Male

DRUGS (4)
  1. LEVOFLOXACINE ARROW FILM-COATED TABLETS 500MG [Suspect]
     Active Substance: LEVOFLOXACIN
     Indication: SEPTIC ARTHRITIS STAPHYLOCOCCAL
     Dosage: 500 MILLIGRAM
     Route: 048
     Dates: start: 20190609, end: 20190615
  2. RIFADINE [Suspect]
     Active Substance: RIFAMPIN
     Indication: SEPTIC ARTHRITIS STAPHYLOCOCCAL
     Dosage: 1200 MILLIGRAM, ONCE A DAY
     Route: 042
     Dates: start: 20190614, end: 20190615
  3. CLOXACILLIN ARROW [Suspect]
     Active Substance: CLOXACILLIN
     Indication: SEPTIC ARTHRITIS STAPHYLOCOCCAL
     Dosage: 12 GRAM, ONCE A DAY
     Route: 041
     Dates: start: 20190606, end: 20190615
  4. PANTOPRAZOLE MYLAN [Suspect]
     Active Substance: PANTOPRAZOLE SODIUM
     Indication: PEPTIC ULCER
     Dosage: 80 MILLIGRAM, ONCE A DAY
     Route: 048
     Dates: start: 20190605, end: 20190619

REACTIONS (4)
  - Acute kidney injury [Recovered/Resolved]
  - Purpura [Recovered/Resolved]
  - Rash maculo-papular [Recovered/Resolved]
  - Pruritus [Recovered/Resolved]

NARRATIVE: CASE EVENT DATE: 20190614
